FAERS Safety Report 4872704-8 (Version None)
Quarter: 2006Q1

REPORT INFORMATION
  Report Type: 
  Country: None (occurrence: None)
  Receive Date: 20060103
  Receipt Date: 20051220
  Transmission Date: 20060701
  Serious: No
  Sender: FDA-Public Use
  Company Number: US200512003522

PATIENT
  Age: 20 Year
  Sex: Male

DRUGS (2)
  1. ZYPREXA [Suspect]
     Indication: BIPOLAR I DISORDER
     Dosage: SEE IMAGE
     Route: 048
     Dates: start: 20030101
  2. ZYPREXA [Suspect]
     Indication: BIPOLAR I DISORDER
     Dosage: SEE IMAGE
     Route: 048
     Dates: start: 20051101

REACTIONS (7)
  - APATHY [None]
  - HAEMOPTYSIS [None]
  - LUNG NEOPLASM [None]
  - PNEUMONIA [None]
  - PYREXIA [None]
  - RECTAL HAEMORRHAGE [None]
  - SOMNOLENCE [None]
